FAERS Safety Report 9624828 (Version 2)
Quarter: 2014Q2

REPORT INFORMATION
  Report Type: Spontaneous
  Country: AU (occurrence: AU)
  Receive Date: 20131015
  Receipt Date: 20140603
  Transmission Date: 20141212
  Serious: Yes (Other)
  Sender: FDA-Public Use
  Company Number: AU-ABBVIE-13P-008-1158248-00

PATIENT
  Age: 25 Year
  Sex: Male

DRUGS (5)
  1. EPILIM [Suspect]
     Indication: PRODUCT USED FOR UNKNOWN INDICATION
     Dosage: 3.2 GM DAILY
  2. LAMICTAL [Suspect]
     Indication: EPILEPSY
     Route: 065
     Dates: start: 19970423
  3. MYSOLINE [Suspect]
     Indication: EPILEPSY
     Dosage: 5 DOSAGE FORM; DAILY
     Route: 065
  4. NEURONTIN [Suspect]
     Indication: PRODUCT USED FOR UNKNOWN INDICATION
     Dosage: 400 MILLIGRAM (S): DAILY
     Route: 065
  5. RIVOTRIL [Suspect]
     Indication: EPILEPSY
     Dosage: 0.5 MILLIGRAM (S) DAILY
     Route: 065
     Dates: start: 19970426

REACTIONS (3)
  - Convulsion [Not Recovered/Not Resolved]
  - Face oedema [Not Recovered/Not Resolved]
  - Periorbital oedema [Not Recovered/Not Resolved]
